FAERS Safety Report 6081742-1 (Version None)
Quarter: 2009Q1

REPORT INFORMATION
  Report Type: 
  Country: None (occurrence: None)
  Receive Date: 20090213
  Receipt Date: 20090203
  Transmission Date: 20090719
  Serious: Yes (Hospitalization, Other)
  Sender: FDA-Public Use
  Company Number: DSA_33151_2009

PATIENT
  Age: 60 Year
  Sex: Female

DRUGS (5)
  1. ENALAPRIL MALEATE [Suspect]
     Indication: BLOOD PRESSURE
     Dosage: 20 MG BID
  2. ENALAPRIL MALEATE [Suspect]
     Indication: BLOOD PRESSURE
     Dosage: 20 MG BID
  3. ENALAPRIL MALEATE [Suspect]
     Indication: BLOOD PRESSURE
  4. ENALAPRIL MALEATE [Suspect]
     Indication: POISONING
  5. U NAT [Concomitant]

REACTIONS (18)
  - BLOOD ANTIMONY INCREASED [None]
  - CHEST PAIN [None]
  - CHRONIC FATIGUE SYNDROME [None]
  - DYSPNOEA [None]
  - GENERALISED OEDEMA [None]
  - HYPERSENSITIVITY [None]
  - HYPOACUSIS [None]
  - IMMUNE SYSTEM DISORDER [None]
  - LUNG INFECTION [None]
  - MORBID THOUGHTS [None]
  - MUSCLE SPASMS [None]
  - PARANOIA [None]
  - POISONING [None]
  - PRODUCT QUALITY ISSUE [None]
  - PULMONARY OEDEMA [None]
  - SPUTUM DISCOLOURED [None]
  - TACHYCARDIA [None]
  - VASOSPASM [None]
